FAERS Safety Report 16638820 (Version 1)
Quarter: 2019Q3

REPORT INFORMATION
  Report Type: Spontaneous
  Country: US (occurrence: US)
  Receive Date: 20190726
  Receipt Date: 20190726
  Transmission Date: 20191004
  Serious: Yes (Death, Other)
  Sender: FDA-Public Use
  Company Number: US-SA-2019SA201600

PATIENT
  Sex: Male

DRUGS (1)
  1. GOLD BOND ORIGINAL STRENGTH POWDER [Suspect]
     Active Substance: MENTHOL\ZINC OXIDE

REACTIONS (5)
  - Metastases to central nervous system [Fatal]
  - Occupational exposure to product [Fatal]
  - Anxiety [Unknown]
  - Lung neoplasm malignant [Fatal]
  - Pain [Unknown]
